FAERS Safety Report 20345340 (Version 2)
Quarter: 2022Q1

REPORT INFORMATION
  Report Type: Spontaneous
  Country: FR (occurrence: FR)
  Receive Date: 20220118
  Receipt Date: 20220121
  Transmission Date: 20220423
  Serious: Yes (Congenital Anomaly, Other)
  Sender: FDA-Public Use
  Company Number: FR-AUROBINDO-AUR-APL-2021-054275

PATIENT
  Age: 16 Month

DRUGS (1)
  1. ISOTRETINOIN [Suspect]
     Active Substance: ISOTRETINOIN
     Indication: Product used for unknown indication
     Dosage: UNK
     Route: 064

REACTIONS (7)
  - Hypotonia [Unknown]
  - Generalised tonic-clonic seizure [Unknown]
  - Pyramidal tract syndrome [Unknown]
  - Psychomotor skills impaired [Unknown]
  - Apathy [Unknown]
  - Malaise [Unknown]
  - Foetal exposure during pregnancy [Unknown]
